FAERS Safety Report 6468663-7 (Version None)
Quarter: 2009Q4

REPORT INFORMATION
  Report Type: 
  Country: None (occurrence: None)
  Receive Date: 20091203
  Receipt Date: 20091124
  Transmission Date: 20100525
  Serious: Yes (Other)
  Sender: FDA-Public Use
  Company Number: CN-ROCHE-668642

PATIENT
  Age: 30 Year
  Sex: Male

DRUGS (4)
  1. PEG-INTERFERON ALFA 2A (RO 25-8310) [Suspect]
     Indication: HEPATITIS C
     Dosage: ELEVEN SHOTS IN TOTAL.
     Route: 058
     Dates: start: 20090701, end: 20091001
  2. COZAAR [Concomitant]
     Indication: DRUG USE FOR UNKNOWN INDICATION
     Route: 048
  3. CHINESE MEDICINE NOS [Concomitant]
     Indication: IMMUNOMODULATORY THERAPY
     Dosage: TRADE NAME: BAILINGJIAONANG
     Route: 048
  4. UNSPECIFIED DRUGS [Concomitant]
     Indication: PROPHYLAXIS
     Route: 048

REACTIONS (1)
  - NEPHROTIC SYNDROME [None]
